FAERS Safety Report 9180757 (Version 4)
Quarter: 2013Q2

REPORT INFORMATION
  Report Type: Report from Study
  Country: US (occurrence: US)
  Receive Date: 20130322
  Receipt Date: 20130423
  Transmission Date: 20140414
  Serious: Yes (Death, Life-Threatening, Hospitalization)
  Sender: FDA-Public Use
  Company Number: US-GENZYME-MOZO-1000820

PATIENT
  Age: 9 Year
  Sex: Male
  Weight: 55.6 kg

DRUGS (14)
  1. MOZOBIL [Suspect]
     Indication: HAEMATOPOIETIC STEM CELL MOBILISATION
     Dosage: 12 MG, Q24 HOURS
     Route: 042
     Dates: start: 20121201, end: 20121203
  2. FLUDARA [Suspect]
     Indication: BONE MARROW CONDITIONING REGIMEN
     Dosage: 1.4 ML, Q24 HOURS
     Route: 042
     Dates: start: 20121126, end: 20121130
  3. CLOLAR [Suspect]
     Indication: ACUTE MYELOID LEUKAEMIA RECURRENT
     Dosage: 53 MG, UNK
     Route: 042
     Dates: start: 20120926, end: 20120930
  4. CLOLAR [Suspect]
     Dosage: 54 MG, UNK
     Route: 042
     Dates: start: 20121101, end: 20121103
  5. THYMOGLOBULIN [Suspect]
     Indication: BONE MARROW CONDITIONING REGIMEN
     Dosage: 143 MG, Q24H
     Route: 042
     Dates: start: 20121202, end: 20121204
  6. THIOTEPA [Suspect]
     Indication: BONE MARROW CONDITIONING REGIMEN
     Dosage: 18 ML, Q12HR
     Route: 042
     Dates: start: 20121201, end: 20121201
  7. MELPHALAN [Suspect]
     Indication: BONE MARROW CONDITIONING REGIMEN
     Dosage: 19 ML, Q24 HOURS
     Route: 042
     Dates: start: 20121202, end: 20121203
  8. CEFEPIME [Concomitant]
     Indication: PRODUCT USED FOR UNKNOWN INDICATION
     Dosage: 2000 MG, UNK
     Route: 042
     Dates: start: 20130221
  9. FLAGYL [Concomitant]
     Indication: PRODUCT USED FOR UNKNOWN INDICATION
     Dosage: 250 MCG, UNK
     Route: 048
     Dates: start: 20130221
  10. METRONIDAZOLE [Concomitant]
     Indication: PRODUCT USED FOR UNKNOWN INDICATION
     Dosage: UNK
     Route: 065
  11. FILGRASTIM [Concomitant]
     Indication: PRODUCT USED FOR UNKNOWN INDICATION
     Dosage: 300 MCG, UNK
     Route: 042
     Dates: start: 20130212
  12. SARGRAMOSTIM [Concomitant]
     Indication: PRODUCT USED FOR UNKNOWN INDICATION
     Dosage: 350 MCG, UNK
     Route: 042
     Dates: start: 20130222
  13. ARA-C [Concomitant]
     Indication: ACUTE MYELOID LEUKAEMIA RECURRENT
     Dosage: UNK
     Route: 065
     Dates: start: 2012
  14. IMMUNOGLOBULIN [Concomitant]
     Indication: PRODUCT USED FOR UNKNOWN INDICATION
     Dosage: 250 ML, UNK
     Route: 042
     Dates: start: 20130128

REACTIONS (8)
  - Post transplant lymphoproliferative disorder [Fatal]
  - Cardiac tamponade [Recovered/Resolved]
  - Epstein-Barr virus infection [Fatal]
  - Respiratory failure [Fatal]
  - Transplant failure [Fatal]
  - Renal failure [Fatal]
  - Sepsis [Recovered/Resolved]
  - Pyrexia [Recovered/Resolved]
